FAERS Safety Report 12449338 (Version 2)
Quarter: 2016Q3

REPORT INFORMATION
  Report Type: Spontaneous
  Country: JP (occurrence: JP)
  Receive Date: 20160608
  Receipt Date: 20160721
  Transmission Date: 20161109
  Serious: Yes (Hospitalization, Other)
  Sender: FDA-Public Use
  Company Number: JP-GILEAD-2016-0206392

PATIENT
  Age: 79 Year
  Sex: Female
  Weight: 60 kg

DRUGS (4)
  1. MUCOSTA [Concomitant]
     Active Substance: REBAMIPIDE
     Indication: GASTRITIS
     Dosage: 1 DF, TID
     Route: 048
     Dates: start: 20150908
  2. GLYCYRON                           /00467202/ [Concomitant]
     Indication: CHRONIC HEPATITIS C
     Dosage: 1 DF, TID
     Route: 048
     Dates: end: 20160705
  3. FAMOTIDINE. [Concomitant]
     Active Substance: FAMOTIDINE
     Indication: GASTRITIS
     Dosage: 20 MG, BID
     Route: 048
     Dates: start: 20151228
  4. HARVONI [Suspect]
     Active Substance: LEDIPASVIR\SOFOSBUVIR
     Indication: CHRONIC HEPATITIS C
     Dosage: 1 DF, UNK
     Route: 048
     Dates: start: 20160126, end: 20160330

REACTIONS (2)
  - Ileus [Recovering/Resolving]
  - Enterocolitis [Unknown]

NARRATIVE: CASE EVENT DATE: 20160325
